FAERS Safety Report 4714074-1 (Version None)
Quarter: 2005Q3

REPORT INFORMATION
  Report Type: 
  Country: None (occurrence: None)
  Receive Date: 20050712
  Receipt Date: 20050624
  Transmission Date: 20060218
  Serious: Yes (Death, Hospitalization)
  Sender: FDA-Public Use
  Company Number: GBS050317001

PATIENT
  Age: 64 Year
  Sex: Male
  Weight: 79 kg

DRUGS (9)
  1. ALIMTA [Suspect]
     Indication: MESOTHELIOMA
     Dosage: 1 G
     Dates: start: 20050303, end: 20050303
  2. GABAENTIN [Concomitant]
  3. GLIPIZIDE [Concomitant]
  4. FORCEVAL [Concomitant]
  5. VITAMIN B-12 [Concomitant]
  6. DEXAMETHASONE [Concomitant]
  7. CO-DANTHRAMER [Concomitant]
  8. KAPAKE [Concomitant]
  9. METOCLOPRAMIDE [Concomitant]

REACTIONS (1)
  - RASH ERYTHEMATOUS [None]
